FAERS Safety Report 9516759 (Version 1)
Quarter: 2013Q3

REPORT INFORMATION
  Report Type: Spontaneous
  Country: US (occurrence: US)
  Receive Date: 20130911
  Receipt Date: 20130911
  Transmission Date: 20140515
  Serious: Yes (Other)
  Sender: FDA-Public Use
  Company Number: US-ASTRAZENECA-2013SE64208

PATIENT
  Age: 74 Year
  Sex: Female
  Weight: 54 kg

DRUGS (9)
  1. NEXIUM [Suspect]
     Indication: GASTROOESOPHAGEAL REFLUX DISEASE
     Route: 048
     Dates: end: 2012
  2. CRESTOR [Suspect]
     Indication: BLOOD CHOLESTEROL INCREASED
     Route: 048
  3. CRESTOR [Suspect]
     Indication: BLOOD CHOLESTEROL INCREASED
     Route: 048
  4. CRESTOR [Suspect]
     Indication: BLOOD CHOLESTEROL INCREASED
     Route: 048
     Dates: end: 2012
  5. ANTI DEPRESSANT [Suspect]
     Route: 065
  6. PROTONIX [Concomitant]
     Indication: GASTROOESOPHAGEAL REFLUX DISEASE
  7. JANTOVEN [Concomitant]
     Indication: ANTICOAGULANT THERAPY
  8. LEVOTHYROXINE [Concomitant]
     Indication: THYROID DISORDER
  9. ATORVASTATIN [Concomitant]
     Indication: BLOOD CHOLESTEROL INCREASED

REACTIONS (7)
  - Coagulation factor V level abnormal [Unknown]
  - Thrombosis [Unknown]
  - Pulmonary embolism [Unknown]
  - Lyme disease [Unknown]
  - Pernicious anaemia [Unknown]
  - Weight decreased [Unknown]
  - Back pain [Unknown]
